FAERS Safety Report 22972553 (Version 5)
Quarter: 2024Q1

REPORT INFORMATION
  Report Type: Spontaneous
  Country: US (occurrence: US)
  Receive Date: 20230922
  Receipt Date: 20240108
  Transmission Date: 20240410
  Serious: Yes (Life-Threatening, Hospitalization)
  Sender: FDA-Public Use
  Company Number: US-Accord-380746

PATIENT
  Age: 69 Year
  Sex: Female
  Weight: 64 kg

DRUGS (63)
  1. FLUOROURACIL [Suspect]
     Active Substance: FLUOROURACIL
     Indication: Colorectal cancer
     Dosage: SINGLE
     Route: 042
     Dates: start: 20220831, end: 20220831
  2. OXALIPLATIN [Suspect]
     Active Substance: OXALIPLATIN
     Indication: Colorectal cancer
     Dosage: SINGLE
     Route: 042
     Dates: start: 20220831, end: 20220831
  3. LEUCOVORIN [Suspect]
     Active Substance: LEUCOVORIN\LEUCOVORIN CALCIUM
     Indication: Colorectal cancer
     Dosage: SINGLE
     Route: 042
     Dates: start: 20220831, end: 20220831
  4. BEVACIZUMAB [Concomitant]
     Active Substance: BEVACIZUMAB
     Indication: Colorectal cancer
     Dosage: SINGLE
     Route: 042
     Dates: start: 20220831, end: 20220831
  5. ZIMBERELIMAB [Concomitant]
     Active Substance: ZIMBERELIMAB
     Indication: Colorectal cancer
     Route: 042
     Dates: start: 20220831, end: 20220831
  6. IBUPROFEN [Concomitant]
     Active Substance: IBUPROFEN
  7. LEVOTHYROXINE [Concomitant]
     Active Substance: LEVOTHYROXINE
     Dates: start: 20170913, end: 20230111
  8. GABAPENTIN [Concomitant]
     Active Substance: GABAPENTIN
     Dates: start: 20171101
  9. LORATADINE [Concomitant]
     Active Substance: LORATADINE
     Dates: start: 20211114
  10. PERCOCET [Concomitant]
     Active Substance: ACETAMINOPHEN\OXYCODONE HYDROCHLORIDE
     Dates: start: 20220311
  11. LORAZEPAM [Concomitant]
     Active Substance: LORAZEPAM
     Dates: start: 20220311
  12. PANTOPRAZOLE [Concomitant]
     Active Substance: PANTOPRAZOLE
     Dates: start: 20220311
  13. LOPERAMIDE HYDROCHLORIDE [Concomitant]
     Active Substance: LOPERAMIDE HYDROCHLORIDE
     Dates: start: 20220315
  14. COLESTID [Concomitant]
     Active Substance: COLESTIPOL HYDROCHLORIDE
     Indication: Premedication
     Dates: start: 20220604, end: 20221111
  15. GLUCOSE W/POTASSIUM CHLORIDE [Concomitant]
     Dates: start: 20220621
  16. DECADRON [Concomitant]
     Active Substance: DEXAMETHASONE
     Indication: Prophylaxis
     Dates: start: 20220727
  17. OLANZAPINE [Concomitant]
     Active Substance: OLANZAPINE
     Dates: start: 20220727
  18. ADDERALL [Concomitant]
     Active Substance: AMPHETAMINE ASPARTATE\AMPHETAMINE SULFATE\DEXTROAMPHETAMINE SACCHARATE\DEXTROAMPHETAMINE SULFATE
     Dates: start: 20220831
  19. LOMOTIL [Concomitant]
     Active Substance: ATROPINE SULFATE\DIPHENOXYLATE HYDROCHLORIDE
     Dates: start: 20220315
  20. COMPAZINE [Concomitant]
     Active Substance: PROCHLORPERAZINE MALEATE
     Indication: Prophylaxis
     Dates: start: 20220901, end: 20220901
  21. PROCHLORPERAZINE MALEATE [Concomitant]
     Active Substance: PROCHLORPERAZINE MALEATE
     Dates: start: 20220908
  22. MS CONTIN [Concomitant]
     Active Substance: MORPHINE SULFATE
     Dates: start: 20220726
  23. ATIVAN [Concomitant]
     Active Substance: LORAZEPAM
     Dates: start: 20220311
  24. COLESTIPOL HYDROCHLORIDE [Concomitant]
     Active Substance: COLESTIPOL HYDROCHLORIDE
     Dates: start: 20220604, end: 20221111
  25. CLARITIN [Concomitant]
     Active Substance: LORATADINE
  26. NEURONTIN [Concomitant]
     Active Substance: GABAPENTIN
  27. PROTONIX [Concomitant]
     Active Substance: PANTOPRAZOLE SODIUM
  28. IMODIUM [Concomitant]
     Active Substance: LOPERAMIDE HYDROCHLORIDE
     Dates: start: 20220315
  29. POTASSIUM [Concomitant]
     Active Substance: POTASSIUM
  30. ZYPREXA [Concomitant]
     Active Substance: OLANZAPINE
     Dates: start: 20220727
  31. ZIMBERELIMAB [Concomitant]
     Active Substance: ZIMBERELIMAB
     Indication: Colorectal cancer
     Route: 042
     Dates: start: 20221228, end: 20221228
  32. LOPERAMIDE HYDROCHLORIDE [Concomitant]
     Active Substance: LOPERAMIDE HYDROCHLORIDE
     Dates: start: 20220901
  33. MS CONTIN [Concomitant]
     Active Substance: MORPHINE SULFATE
     Dates: start: 20220726
  34. FLUOROURACIL [Suspect]
     Active Substance: FLUOROURACIL
     Indication: Colorectal cancer
     Dosage: SINGLE
     Route: 042
     Dates: start: 20220831, end: 20220831
  35. FLUOROURACIL [Suspect]
     Active Substance: FLUOROURACIL
     Indication: Colorectal cancer
     Dosage: SINGLE
     Route: 042
     Dates: start: 20220929, end: 20220929
  36. FLUOROURACIL [Suspect]
     Active Substance: FLUOROURACIL
     Indication: Colorectal cancer
     Dosage: SINGLE
     Route: 042
     Dates: start: 20220929, end: 20220929
  37. FLUOROURACIL [Suspect]
     Active Substance: FLUOROURACIL
     Indication: Colorectal cancer
     Dosage: SINGLE
     Route: 042
     Dates: start: 20221019, end: 20221019
  38. FLUOROURACIL [Suspect]
     Active Substance: FLUOROURACIL
     Indication: Colorectal cancer
     Dosage: SINGLE
     Route: 042
     Dates: start: 20221019, end: 20221019
  39. FLUOROURACIL [Suspect]
     Active Substance: FLUOROURACIL
     Indication: Colorectal cancer
     Dosage: SINGLE
     Route: 042
     Dates: start: 20221109, end: 20221109
  40. FLUOROURACIL [Suspect]
     Active Substance: FLUOROURACIL
     Indication: Colorectal cancer
     Dosage: SINGLE
     Route: 042
     Dates: start: 20221109, end: 20221109
  41. FLUOROURACIL [Suspect]
     Active Substance: FLUOROURACIL
     Indication: Colorectal cancer
     Dosage: SINGLE
     Route: 042
     Dates: start: 20221130, end: 20221130
  42. FLUOROURACIL [Suspect]
     Active Substance: FLUOROURACIL
     Indication: Colorectal cancer
     Dosage: SINGLE
     Route: 042
     Dates: start: 20221214, end: 20221214
  43. FLUOROURACIL [Suspect]
     Active Substance: FLUOROURACIL
     Indication: Colorectal cancer
     Dosage: SINGLE
     Route: 042
     Dates: start: 20221228, end: 20221228
  44. FLUOROURACIL [Suspect]
     Active Substance: FLUOROURACIL
     Indication: Colorectal cancer
     Dosage: SINGLE
     Route: 042
     Dates: start: 20230111, end: 20230111
  45. OXALIPLATIN [Suspect]
     Active Substance: OXALIPLATIN
     Indication: Colorectal cancer
     Dosage: SINGLE
     Route: 042
     Dates: start: 20220929, end: 20220929
  46. OXALIPLATIN [Suspect]
     Active Substance: OXALIPLATIN
     Indication: Colorectal cancer
     Dosage: SINGLE
     Route: 042
     Dates: start: 20221019, end: 20221019
  47. OXALIPLATIN [Suspect]
     Active Substance: OXALIPLATIN
     Indication: Colorectal cancer
     Dosage: SINGLE
     Route: 042
     Dates: start: 20221109, end: 20221109
  48. OXALIPLATIN [Suspect]
     Active Substance: OXALIPLATIN
     Indication: Colorectal cancer
     Dosage: SINGLE
     Route: 042
     Dates: start: 20221130, end: 20221130
  49. OXALIPLATIN [Suspect]
     Active Substance: OXALIPLATIN
     Indication: Colorectal cancer
     Dosage: SINGLE
     Route: 042
     Dates: start: 20221214, end: 20221214
  50. OXALIPLATIN [Suspect]
     Active Substance: OXALIPLATIN
     Indication: Colorectal cancer
     Dosage: SINGLE
     Route: 042
     Dates: start: 20221228, end: 20221228
  51. OXALIPLATIN [Suspect]
     Active Substance: OXALIPLATIN
     Indication: Colorectal cancer
     Dosage: SINGLE
     Route: 042
     Dates: start: 20230111, end: 20230111
  52. LEUCOVORIN [Suspect]
     Active Substance: LEUCOVORIN\LEUCOVORIN CALCIUM
     Indication: Colorectal cancer
     Dosage: SINGLE
     Route: 042
     Dates: start: 20220929, end: 20220929
  53. LEUCOVORIN [Suspect]
     Active Substance: LEUCOVORIN\LEUCOVORIN CALCIUM
     Indication: Colorectal cancer
     Dosage: SINGLE
     Route: 042
     Dates: start: 20221019, end: 20221019
  54. LEUCOVORIN [Suspect]
     Active Substance: LEUCOVORIN\LEUCOVORIN CALCIUM
     Indication: Colorectal cancer
     Dosage: SINGLE
     Route: 042
     Dates: start: 20221109, end: 20221109
  55. ZIMBERELIMAB [Concomitant]
     Active Substance: ZIMBERELIMAB
     Indication: Colorectal cancer
     Route: 042
     Dates: start: 20221019, end: 20221019
  56. ZIMBERELIMAB [Concomitant]
     Active Substance: ZIMBERELIMAB
     Indication: Colorectal cancer
     Route: 042
     Dates: start: 20221130, end: 20221130
  57. BEVACIZUMAB [Concomitant]
     Active Substance: BEVACIZUMAB
     Indication: Colorectal cancer
     Dosage: SINGLE
     Route: 042
     Dates: start: 20220929, end: 20220929
  58. BEVACIZUMAB [Concomitant]
     Active Substance: BEVACIZUMAB
     Indication: Colorectal cancer
     Dosage: SINGLE
     Route: 042
     Dates: start: 20221019, end: 20221019
  59. BEVACIZUMAB [Concomitant]
     Active Substance: BEVACIZUMAB
     Indication: Colorectal cancer
     Dosage: SINGLE
     Route: 042
     Dates: start: 20221109, end: 20221109
  60. BEVACIZUMAB [Concomitant]
     Active Substance: BEVACIZUMAB
     Indication: Colorectal cancer
     Dosage: SINGLE
     Route: 042
     Dates: start: 20221130, end: 20221130
  61. BEVACIZUMAB [Concomitant]
     Active Substance: BEVACIZUMAB
     Indication: Colorectal cancer
     Dosage: SINGLE
     Route: 042
     Dates: start: 20221214, end: 20221214
  62. BEVACIZUMAB [Concomitant]
     Active Substance: BEVACIZUMAB
     Indication: Colorectal cancer
     Dosage: SINGLE
     Route: 042
     Dates: start: 20221228, end: 20221228
  63. BEVACIZUMAB [Concomitant]
     Active Substance: BEVACIZUMAB
     Indication: Colorectal cancer
     Dosage: SINGLE
     Route: 042
     Dates: start: 20230111, end: 20230111

REACTIONS (2)
  - Febrile neutropenia [Recovered/Resolved]
  - Pneumonitis [Recovered/Resolved]

NARRATIVE: CASE EVENT DATE: 20220930
